FAERS Safety Report 6713450-5 (Version None)
Quarter: 2010Q2

REPORT INFORMATION
  Report Type: 
  Country: None (occurrence: None)
  Receive Date: 20100504
  Receipt Date: 20100419
  Transmission Date: 20101027
  Serious: Yes (Death)
  Sender: FDA-Public Use
  Company Number: 10-044

PATIENT
  Age: 59 Year
  Sex: Male

DRUGS (1)
  1. CEFTRIAXON [Suspect]
     Indication: SKIN TEST
     Dosage: UNK, 1 DOSE, INTRADERMAL
     Route: 023

REACTIONS (5)
  - ABDOMINAL INJURY [None]
  - ANAPHYLACTIC SHOCK [None]
  - CHEST INJURY [None]
  - EMPHYSEMA [None]
  - PULMONARY OEDEMA [None]
